FAERS Safety Report 5529377-0 (Version None)
Quarter: 2007Q4

REPORT INFORMATION
  Report Type: 
  Country: None (occurrence: None)
  Receive Date: 20071129
  Receipt Date: 20071121
  Transmission Date: 20080405
  Serious: Yes (Disabling)
  Sender: FDA-Public Use
  Company Number: B0489815A

PATIENT
  Age: 89 Year
  Sex: Female
  Weight: 45 kg

DRUGS (2)
  1. TYKERB [Suspect]
     Route: 048
  2. CAPECITABINE [Concomitant]
     Route: 048

REACTIONS (3)
  - DEHYDRATION [None]
  - DIARRHOEA [None]
  - NAUSEA [None]
